FAERS Safety Report 24284536 (Version 1)
Quarter: 2024Q3

REPORT INFORMATION
  Report Type: Spontaneous
  Country: BE (occurrence: BE)
  Receive Date: 20240905
  Receipt Date: 20240905
  Transmission Date: 20241017
  Serious: Yes (Disabling)
  Sender: AUROBINDO
  Company Number: BE-FAMHP-DHH-N2024-122549

PATIENT
  Sex: Female

DRUGS (1)
  1. SERTRALINE [Suspect]
     Active Substance: SERTRALINE HYDROCHLORIDE
     Indication: Depression
     Dosage: 1 DOSAGE FORM, ONCE A DAY (MORNING)
     Route: 048
     Dates: start: 20240701

REACTIONS (1)
  - Anal incontinence [Unknown]

NARRATIVE: CASE EVENT DATE: 20240807
